FAERS Safety Report 7626926-3 (Version None)
Quarter: 2011Q3

REPORT INFORMATION
  Report Type: 
  Country: None (occurrence: None)
  Receive Date: 20110721
  Receipt Date: 20110708
  Transmission Date: 20111222
  Serious: Yes (Other)
  Sender: FDA-Public Use
  Company Number: US-UCBSA-033886

PATIENT
  Sex: Female
  Weight: 83 kg

DRUGS (13)
  1. MICARDIS [Concomitant]
     Indication: BLOOD PRESSURE
     Route: 048
     Dates: start: 20090101
  2. ADVAIR DISKUS 100/50 [Concomitant]
     Indication: BRONCHIECTASIS
     Dosage: 2 INHALATIONS; 100/50 (UNITS UNSPECIFIED)
     Dates: start: 20080101
  3. ASPIRIN [Concomitant]
     Indication: BLOOD PRESSURE
     Route: 048
     Dates: start: 20080101
  4. CELEBREX [Concomitant]
     Indication: RHEUMATOID ARTHRITIS
     Route: 048
     Dates: start: 20060101
  5. LEFLUNOMIDE [Concomitant]
     Indication: RHEUMATOID ARTHRITIS
     Route: 048
  6. SINGULAIR [Concomitant]
     Indication: BRONCHIECTASIS
     Route: 048
     Dates: start: 20090101
  7. FEXOFENADINE [Concomitant]
     Indication: SEASONAL ALLERGY
     Route: 048
     Dates: start: 20070101
  8. ALBUTEROL [Concomitant]
     Indication: ASTHMA
     Dosage: 2.5 MG/ 3 ML TWICE DAILY; 2 INHALATIONS
  9. SINGULAIR [Concomitant]
     Indication: ASTHMA
     Route: 048
     Dates: start: 20090101
  10. ADVAIR DISKUS 100/50 [Concomitant]
     Indication: ASTHMA
     Dosage: 2 INHALATIONS; 100/50 (UNITS UNSPECIFIED)
     Dates: start: 20080101
  11. EVISTA [Concomitant]
     Indication: OSTEOPENIA
     Route: 048
     Dates: start: 20080101
  12. CIMZIA [Suspect]
     Indication: RHEUMATOID ARTHRITIS
     Route: 058
     Dates: start: 20110201
  13. OMEPRAZOLE [Concomitant]
     Indication: GASTROOESOPHAGEAL REFLUX DISEASE
     Route: 048
     Dates: start: 20060101

REACTIONS (2)
  - HYPOAESTHESIA [None]
  - INTERVERTEBRAL DISC PROTRUSION [None]
